FAERS Safety Report 9157868 (Version 1)
Quarter: 2013Q1

REPORT INFORMATION
  Report Type: Spontaneous
  Country: US (occurrence: None)
  Receive Date: 20130213
  Receipt Date: 20130213
  Transmission Date: 20140127
  Serious: Yes (Hospitalization)
  Sender: FDA-Public Use
  Company Number: 2013-0192

PATIENT
  Age: 56 Year
  Sex: Male

DRUGS (22)
  1. CARFILZOMIB [Suspect]
     Indication: PLASMA CELL MYELOMA
     Dosage: (DAYS 1, 2, 8, 9, 15, 16, EVERY 28 DAYS), INTRAVENOUS?
     Route: 042
     Dates: start: 20111008, end: 20111204
  2. ZOMETA (ZOLEDRONIC ACID) (ZOLEDRONIC ACID) [Concomitant]
  3. LEVAQUIN (LEVOFLOXACIN) (LEVOFLOXACIN) [Concomitant]
  4. ACYCLOVIR (ACICLOVIR) (ACICLOVIR) [Concomitant]
  5. PROTONIX (PANTOPRAZOLE SODIUM SESQUIHYDRATE) (PANTOPRAZOLE SODIUM SESQUIHYDRATE) [Concomitant]
  6. CYMBALTA (DULOXETINE HYDROCHLORIDE) (DULOXETINE HYDROCHLORIDE) [Concomitant]
  7. METANX (PYRIDOXINE HYDROCHLORIDE) (PYRIDOXINE HYDROCHLORIDE) [Concomitant]
  8. SINGULAIR [Concomitant]
  9. SLOW FE CR-TABS (FERROUS SULFATE) (FERROUS SULFATE) [Concomitant]
  10. CRESTOR (ROSUVASTATIN CALCIUM) (ROSUVASTATIN CALCIUM) [Concomitant]
  11. CENTRUM SILVER (ASCORBIC ACID) (ASCORBIC ACID) [Concomitant]
  12. DEPO-TESTOSTERONE (TESTERONE CIPIONATE) (TESTOSTERONE CIPIONATE) [Concomitant]
  13. ADVAIR DISKUS (FLUTICVASONE PROPIONATE) (FLUTICASONE PROPIONATE) [Concomitant]
  14. ATIVAN (LORAZEPAM) (LORAZEPAM) [Concomitant]
  15. AMBIEN (ZOLPIDEM TARTRATE) (ZOLPIDEM TARTRATE) [Concomitant]
  16. ZOFRAN (ONDANSETRON) (ONDANSETRON) [Concomitant]
  17. ACTIQ (FENTANYL CITRATE) (FENTANYL CITRATE) [Concomitant]
  18. KLOR-CON M20 CR (POTASSIUM CHLORIDE) (POTASSIUM CHLORIDE) [Concomitant]
  19. PROAIR HFA (SALBUTAMOL SULFATE) (SALBUTAMOL SULFATE) [Concomitant]
  20. DEPO-TESTOSTERONE (TESTOSTERONE CIPIONATE) (TESTOSTERONE CIPIONATE) [Concomitant]
  21. (VANCOMYCIN HYDROCHLORIDE) (VANCOMYCIN HYDROCHLORIDE) [Concomitant]
  22. INVANZ (ERTAPENEM SODIUM) (ERTAPENEM SODIUM) [Concomitant]

REACTIONS (13)
  - Staphylococcal bacteraemia [None]
  - Pneumonia [None]
  - Nausea [None]
  - Hypotension [None]
  - Pancytopenia [None]
  - Pulmonary oedema [None]
  - Pulmonary congestion [None]
  - Fluid overload [None]
  - Bronchitis [None]
  - Left ventricular dysfunction [None]
  - Ventricular hypokinesia [None]
  - Mitral valve incompetence [None]
  - Chest pain [None]
